FAERS Safety Report 5806742-5 (Version None)
Quarter: 2008Q3

REPORT INFORMATION
  Report Type: 
  Country: None (occurrence: None)
  Receive Date: 20080709
  Receipt Date: 20080709
  Transmission Date: 20090109
  Serious: Yes (Life-Threatening, Other)
  Sender: FDA-Public Use
  Company Number: None

PATIENT
  Age: 24 Year
  Sex: Female
  Weight: 60.782 kg

DRUGS (1)
  1. PROVENTIL-HFA [Suspect]
     Indication: ASTHMA
     Dosage: 2 X DLY OR AS NEED INHAL
     Route: 055

REACTIONS (1)
  - DRUG INEFFECTIVE [None]
